FAERS Safety Report 4474114-4 (Version None)
Quarter: 2004Q4

REPORT INFORMATION
  Report Type: 
  Country: None (occurrence: None)
  Receive Date: 20041008
  Receipt Date: 20041006
  Transmission Date: 20050328
  Serious: Yes (Death)
  Sender: FDA-Public Use
  Company Number: KII-2002-0000009

PATIENT
  Age: 44 Year
  Sex: Female

DRUGS (2)
  1. OXYCONTIN [Suspect]
     Dosage: 80 MG
  2. XANAX [Suspect]

REACTIONS (1)
  - ACCIDENTAL OVERDOSE [None]
